FAERS Safety Report 7001920-4 (Version None)
Quarter: 2010Q3

REPORT INFORMATION
  Report Type: 
  Country: None (occurrence: None)
  Receive Date: 20100920
  Receipt Date: 20100908
  Transmission Date: 20110219
  Serious: Yes (Death, Hospitalization)
  Sender: FDA-Public Use
  Company Number: A0802194A

PATIENT
  Age: 69 Year
  Sex: Male
  Weight: 84.7 kg

DRUGS (1)
  1. AVANDIA [Suspect]
     Route: 048

REACTIONS (4)
  - CARDIAC FAILURE CONGESTIVE [None]
  - CEREBROVASCULAR ACCIDENT [None]
  - DIABETES MELLITUS [None]
  - LOSS OF CONSCIOUSNESS [None]
